FAERS Safety Report 7720603-6 (Version None)
Quarter: 2011Q3

REPORT INFORMATION
  Report Type: 
  Country: None (occurrence: None)
  Receive Date: 20110831
  Receipt Date: 20110817
  Transmission Date: 20111222
  Serious: Yes (Other)
  Sender: FDA-Public Use
  Company Number: US-ELI_LILLY_AND_COMPANY-US201108005931

PATIENT
  Sex: Female

DRUGS (12)
  1. VITAMIN D [Concomitant]
  2. SYNTHROID [Concomitant]
  3. LOVASTATIN [Concomitant]
  4. LEVEMIR [Concomitant]
  5. ASCORBIC ACID [Concomitant]
  6. CALCIUM CARBONATE [Concomitant]
  7. VITAMIN E [Concomitant]
  8. LISINOPRIL [Concomitant]
  9. MULTI-VITAMIN [Concomitant]
  10. FORTEO [Suspect]
     Indication: OSTEOPOROSIS
     Dosage: 20 UG, QD
     Dates: start: 20100901
  11. POTASSIUM [Concomitant]
  12. NOVOLOG [Concomitant]

REACTIONS (1)
  - COLON CANCER [None]
